FAERS Safety Report 9266935 (Version 3)
Quarter: 2013Q3

REPORT INFORMATION
  Report Type: Spontaneous
  Country: US (occurrence: US)
  Receive Date: 20130502
  Receipt Date: 20130822
  Transmission Date: 20140515
  Serious: Yes (Hospitalization, Other)
  Sender: FDA-Public Use
  Company Number: US-009507513-1304USA016621

PATIENT
  Age: 57 Year
  Sex: Male
  Weight: 67.12 kg

DRUGS (20)
  1. PEG-INTRON [Suspect]
     Dosage: 120 MICROGRAM/0.5ML, QW
     Route: 058
  2. VICTRELIS [Suspect]
     Dosage: 4 CAPSULES OF 200 MG, TID, START ON WEEK 5
     Route: 048
  3. VICTRELIS [Suspect]
     Dosage: 400 MG, BID
     Route: 048
  4. RIBAVIRIN [Suspect]
     Dosage: 200 MG, UNK
     Route: 048
  5. BACTRIM [Concomitant]
     Dosage: 400-80 MG, UNK
  6. EPOGEN [Concomitant]
     Dosage: 10000/ML
  7. PREDNISONE [Concomitant]
     Dosage: 10 MG, UNK
     Route: 048
  8. GABAPENTIN [Concomitant]
     Dosage: 600 MG, UNK
     Route: 048
  9. AMITRIPTYLIN [Concomitant]
     Dosage: 25 MG, UNK
     Route: 048
  10. PLETAL [Concomitant]
     Dosage: 50 MG, UNK
     Route: 048
  11. OXYCONTIN [Concomitant]
     Dosage: 60 MG, UNK
     Route: 048
  12. OXYCODONE [Concomitant]
     Dosage: 15 MG, UNK
     Route: 048
  13. ASPIRIN [Concomitant]
     Dosage: 81 MG, UNK
     Route: 048
  14. CRESTOR [Concomitant]
     Dosage: 5 MG, UNK
     Route: 048
  15. OS-CAL (CALCITRIOL) [Concomitant]
     Dosage: 500+D, UNK
     Route: 048
  16. FOLIC ACID [Concomitant]
     Dosage: 1 MG, UNK
     Route: 048
  17. MELATONIN [Concomitant]
  18. MIRALAX [Concomitant]
     Dosage: 3350 NF, UNK
  19. LACTULOSE [Concomitant]
     Dosage: 10GM/15, UNK
  20. RITUXAN [Concomitant]
     Dosage: 500 MG, UNK

REACTIONS (12)
  - Vasculitis [Unknown]
  - Neurological symptom [Unknown]
  - Mental status changes [Unknown]
  - Fall [Unknown]
  - Emotional disorder [Unknown]
  - Tachycardia [Unknown]
  - Dysgeusia [Unknown]
  - Neuropathy peripheral [Unknown]
  - Anaemia [Unknown]
  - Fatigue [Unknown]
  - Chills [Unknown]
  - Peroneal nerve palsy [Unknown]
